FAERS Safety Report 18506527 (Version 1)
Quarter: 2020Q4

REPORT INFORMATION
  Report Type: Spontaneous
  Country: CL (occurrence: CL)
  Receive Date: 20201116
  Receipt Date: 20201116
  Transmission Date: 20210114
  Serious: Yes (Other)
  Sender: FDA-Public Use
  Company Number: CL-PFIZER INC-2020447581

PATIENT
  Age: 56 Year
  Sex: Male

DRUGS (1)
  1. AZULFIDINE [Suspect]
     Active Substance: SULFASALAZINE
     Indication: SPINAL OSTEOARTHRITIS

REACTIONS (6)
  - Inflammation [Unknown]
  - Arthropathy [Unknown]
  - Gait inability [Unknown]
  - Condition aggravated [Unknown]
  - Off label use [Unknown]
  - Mobility decreased [Unknown]
